FAERS Safety Report 8203959-X (Version None)
Quarter: 2012Q1

REPORT INFORMATION
  Report Type: 
  Country: None (occurrence: None)
  Receive Date: 20120313
  Receipt Date: 20120229
  Transmission Date: 20120608
  Serious: No
  Sender: FDA-Public Use
  Company Number: US-BAYER-2012-021025

PATIENT
  Age: 19 Year
  Sex: Female

DRUGS (2)
  1. BEYAZ [Suspect]
     Indication: CONTRACEPTION
     Dosage: UNK
     Route: 048
     Dates: start: 20100601
  2. MELATONIN [Interacting]
     Indication: INSOMNIA
     Dosage: UNK
     Dates: start: 20120101

REACTIONS (2)
  - DEPRESSED MOOD [None]
  - INSOMNIA [None]
